FAERS Safety Report 5793567-2 (Version None)
Quarter: 2008Q2

REPORT INFORMATION
  Report Type: 
  Country: None (occurrence: None)
  Receive Date: 20080627
  Receipt Date: 20071019
  Transmission Date: 20081010
  Serious: No
  Sender: FDA-Public Use
  Company Number: A0688712A

PATIENT
  Age: 79 Year
  Sex: Female

DRUGS (3)
  1. ALBUTEROL [Suspect]
     Indication: ASTHMA
     Route: 048
     Dates: start: 20000101, end: 20000101
  2. ALBUTEROL [Suspect]
     Indication: DRUG USE FOR UNKNOWN INDICATION
     Route: 055
     Dates: start: 20071017
  3. NO CONCURRENT MEDICATION [Concomitant]

REACTIONS (2)
  - PRURITUS [None]
  - THROAT TIGHTNESS [None]
